FAERS Safety Report 6760355-X (Version None)
Quarter: 2010Q2

REPORT INFORMATION
  Report Type: 
  Country: None (occurrence: None)
  Receive Date: 20100608
  Receipt Date: 20100420
  Transmission Date: 20101027
  Serious: Yes (Hospitalization, Other)
  Sender: FDA-Public Use
  Company Number: US-BAYER-201016842NA

PATIENT
  Age: 18 Year
  Sex: Female
  Weight: 50 kg

DRUGS (2)
  1. YAZ [Suspect]
     Indication: CONTRACEPTION
     Route: 048
     Dates: start: 20060101, end: 20080901
  2. YASMIN [Suspect]
     Indication: CONTRACEPTION
     Route: 048
     Dates: start: 20060101, end: 20080901

REACTIONS (3)
  - CEREBROVASCULAR ACCIDENT [None]
  - DEPRESSION [None]
  - THROMBOSIS [None]
